FAERS Safety Report 15160508 (Version 1)
Quarter: 2018Q3

REPORT INFORMATION
  Report Type: Spontaneous
  Country: CN (occurrence: CN)
  Receive Date: 20180718
  Receipt Date: 20180718
  Transmission Date: 20181010
  Serious: Yes (Hospitalization, Other)
  Sender: FDA-Public Use
  Company Number: CN-MYLANLABS-2018M1053056

PATIENT
  Age: 30 Year
  Sex: Male
  Weight: 28.5 kg

DRUGS (7)
  1. BENZBROMARONE [Concomitant]
     Active Substance: BENZBROMARONE
     Indication: BLOOD URIC ACID INCREASED
     Dosage: UNK
  2. PURE BAKING SODA [Concomitant]
     Active Substance: SODIUM BICARBONATE
     Indication: BLOOD URIC ACID INCREASED
     Dosage: UNK
  3. VALPROIC ACID. [Suspect]
     Active Substance: VALPROIC ACID
     Indication: GENERALISED TONIC-CLONIC SEIZURE
     Dosage: (0.75 G IN THE MORNING, 0.25 G AT NOON AND 0.25 G IN THE EVENING), TID
  4. CORTISONE [Concomitant]
     Active Substance: CORTISONE\HYDROCORTISONE
     Indication: HORMONE REPLACEMENT THERAPY
     Dosage: UNK
  5. EUTHYROX [Concomitant]
     Active Substance: LEVOTHYROXINE SODIUM
     Indication: HORMONE REPLACEMENT THERAPY
     Dosage: UNK
  6. TOPIRAMATE. [Interacting]
     Active Substance: TOPIRAMATE
     Indication: GENERALISED TONIC-CLONIC SEIZURE
     Dosage: 75MG IN THE MORNING; 75 G AT NIGHT, BID
  7. NOVOLIN 30R                        /00030501/ [Concomitant]
     Active Substance: INSULIN HUMAN
     Indication: DIABETES MELLITUS
     Dosage: 10 U IN THE MORNING AND 6 U IN THE EVENING

REACTIONS (12)
  - Seizure [Recovered/Resolved]
  - Liver function test abnormal [Unknown]
  - Decreased appetite [Recovered/Resolved]
  - Lethargy [Unknown]
  - Ammonia increased [Unknown]
  - Hyperammonaemic encephalopathy [Recovering/Resolving]
  - Renal impairment [Unknown]
  - Labelled drug-drug interaction medication error [Recovering/Resolving]
  - Altered state of consciousness [Recovered/Resolved]
  - Mental fatigue [Unknown]
  - Pyrexia [Recovered/Resolved]
  - Coma [Recovered/Resolved]
